FAERS Safety Report 20106514 (Version 3)
Quarter: 2023Q2

REPORT INFORMATION
  Report Type: Other
  Country: US (occurrence: None)
  Receive Date: 20211124
  Receipt Date: 20230412
  Transmission Date: 20230722
  Serious: Yes (Hospitalization)
  Sender: FDA-Public Use
  Company Number: US-ROCHE-2963121

PATIENT
  Age: 33 Year
  Sex: Female

DRUGS (3)
  1. OCREVUS [Suspect]
     Active Substance: OCRELIZUMAB
     Indication: Relapsing multiple sclerosis
     Dosage: 11/JUL/2021
     Route: 065
     Dates: start: 20191018
  2. BACLOFEN [Concomitant]
     Active Substance: BACLOFEN
  3. IBUPROFEN [Concomitant]
     Active Substance: IBUPROFEN

REACTIONS (3)
  - COVID-19 [Recovered/Resolved]
  - HIV infection [Unknown]
  - Headache [Unknown]

NARRATIVE: CASE EVENT DATE: 20211104
